FAERS Safety Report 12210195 (Version 2)
Quarter: 2016Q2

REPORT INFORMATION
  Report Type: Spontaneous
  Country: US (occurrence: US)
  Receive Date: 20160325
  Receipt Date: 20160511
  Transmission Date: 20160815
  Serious: Yes (Hospitalization, Other)
  Sender: FDA-Public Use
  Company Number: US-PFIZER INC-2016164244

PATIENT
  Age: 65 Year
  Sex: Male

DRUGS (3)
  1. METFORMIN [Concomitant]
     Active Substance: METFORMIN HYDROCHLORIDE
     Dosage: UNK
     Dates: start: 2006
  2. LANTUS [Concomitant]
     Active Substance: INSULIN GLARGINE
     Dosage: UNK
     Dates: start: 200804
  3. LIPITOR [Suspect]
     Active Substance: ATORVASTATIN CALCIUM
     Indication: BLOOD CHOLESTEROL
     Dosage: 40 MG, 1X/DAY

REACTIONS (1)
  - Pancreatitis [Recovered/Resolved]

NARRATIVE: CASE EVENT DATE: 20081114
